FAERS Safety Report 10608800 (Version 2)
Quarter: 2015Q2

REPORT INFORMATION
  Report Type: Spontaneous
  Country: US (occurrence: US)
  Receive Date: 20141125
  Receipt Date: 20150528
  Transmission Date: 20150821
  Serious: Yes (Death, Hospitalization, Other)
  Sender: FDA-Public Use
  Company Number: US-GLAXOSMITHKLINE-US2014025394

PATIENT
  Age: 75 Year
  Sex: Female

DRUGS (11)
  1. MEKINIST [Suspect]
     Active Substance: TRAMETINIB DIMETHYL SULFOXIDE
     Indication: PLASMA CELL MYELOMA
     Route: 048
     Dates: start: 2013, end: 201408
  2. PENTAMIDINE [Concomitant]
     Active Substance: PENTAMIDINE
  3. TAMIFLU [Concomitant]
     Active Substance: OSELTAMIVIR PHOSPHATE
  4. DRONABINOL. [Concomitant]
     Active Substance: DRONABINOL
  5. PROTONIX [Concomitant]
     Active Substance: PANTOPRAZOLE SODIUM
  6. LORAZEPAM. [Concomitant]
     Active Substance: LORAZEPAM
  7. CLONIDINE. [Concomitant]
     Active Substance: CLONIDINE
  8. LEVOFLOXACIN. [Concomitant]
     Active Substance: LEVOFLOXACIN
  9. ACYCLOVIR. [Concomitant]
     Active Substance: ACYCLOVIR
  10. AMLODIPINE [Concomitant]
     Active Substance: AMLODIPINE BESYLATE
  11. REMERON [Concomitant]
     Active Substance: MIRTAZAPINE

REACTIONS (8)
  - Vena cava filter removal [Unknown]
  - Malaise [Unknown]
  - Procedural complication [Unknown]
  - Cardiac failure [Fatal]
  - Central venous catheter removal [Unknown]
  - Central venous catheterisation [Fatal]
  - Medical device complication [Unknown]
  - Vena cava filter insertion [Unknown]

NARRATIVE: CASE EVENT DATE: 201307
